FAERS Safety Report 23879324 (Version 1)
Quarter: 2024Q2

REPORT INFORMATION
  Report Type: Other
  Country: IT (occurrence: None)
  Receive Date: 20240521
  Receipt Date: 20240521
  Transmission Date: 20240716
  Serious: No
  Sender: FDA-Public Use
  Company Number: IT-ROCHE-3566246

PATIENT
  Age: 53 Year
  Sex: Female
  Weight: 48 kg

DRUGS (5)
  1. OCRELIZUMAB [Suspect]
     Active Substance: OCRELIZUMAB
     Indication: Relapsing-remitting multiple sclerosis
     Dosage: 300 MG ON DAY 0, 14, THEN 600 MG EVERY 6 MONTHS
     Route: 042
     Dates: start: 20200928, end: 20201012
  2. OCRELIZUMAB [Suspect]
     Active Substance: OCRELIZUMAB
     Dosage: SUBSEQUENT DOSES OF OCRELIZUMAB: 26/OCT/2021, 18/MAY/2022, 21/NOV/2022, 11/MAY/2023, 15/NOV/2023, 13
     Route: 042
     Dates: start: 20210414
  3. PANTOPRAZOLE [Concomitant]
     Active Substance: PANTOPRAZOLE
     Route: 048
  4. NEURONORM [Concomitant]
     Route: 048
     Dates: start: 20230411
  5. METRONIDAZOLE [Concomitant]
     Active Substance: METRONIDAZOLE
     Route: 061

REACTIONS (1)
  - Influenza [Recovered/Resolved]

NARRATIVE: CASE EVENT DATE: 20240318
